FAERS Safety Report 5952144-0 (Version None)
Quarter: 2008Q4

REPORT INFORMATION
  Report Type: 
  Country: None (occurrence: None)
  Receive Date: 20081113
  Receipt Date: 20080630
  Transmission Date: 20090506
  Serious: No
  Sender: FDA-Public Use
  Company Number: A0735386A

PATIENT
  Age: 78 Year
  Sex: Male

DRUGS (6)
  1. COREG [Suspect]
     Indication: HYPERTENSION
     Dosage: 3.125MG TWICE PER DAY
     Route: 048
     Dates: start: 20060601
  2. COREG [Suspect]
     Dosage: 3.125MG TWICE PER DAY
     Route: 048
  3. FLOMAX [Suspect]
     Indication: DRUG USE FOR UNKNOWN INDICATION
     Route: 065
  4. UROXATRAL [Concomitant]
  5. NORVASC [Concomitant]
  6. DIOVAN [Concomitant]

REACTIONS (2)
  - DIZZINESS [None]
  - GASTRIC DISORDER [None]
